FAERS Safety Report 25031923 (Version 2)
Quarter: 2025Q2

REPORT INFORMATION
  Report Type: Report from Study
  Country: US (occurrence: US)
  Receive Date: 20250303
  Receipt Date: 20250411
  Transmission Date: 20250717
  Serious: Yes (Other)
  Sender: TEVA
  Company Number: US-TEVA-VS-3302426

PATIENT
  Age: 64 Year
  Sex: Female
  Weight: 39.916 kg

DRUGS (4)
  1. AUSTEDO [Suspect]
     Active Substance: DEUTETRABENAZINE
     Indication: Tardive dyskinesia
     Route: 065
     Dates: start: 202310
  2. AUSTEDO [Suspect]
     Active Substance: DEUTETRABENAZINE
     Indication: Tardive dyskinesia
     Route: 065
  3. CLONAZEPAM [Concomitant]
     Active Substance: CLONAZEPAM
     Indication: Anxiety
     Route: 048
  4. ADDERALL [Concomitant]
     Active Substance: AMPHETAMINE ASPARTATE\AMPHETAMINE SULFATE\DEXTROAMPHETAMINE SACCHARATE\DEXTROAMPHETAMINE SULFATE
     Indication: Attention deficit hyperactivity disorder
     Route: 048

REACTIONS (9)
  - Dystonia [Unknown]
  - Sitting disability [Unknown]
  - Drug ineffective [Unknown]
  - Depression [Unknown]
  - Off label use [Unknown]
  - Drug titration error [Unknown]
  - Social problem [Unknown]
  - Musculoskeletal stiffness [Not Recovered/Not Resolved]
  - Depressed mood [Unknown]
